FAERS Safety Report 9306056 (Version 4)
Quarter: 2013Q4

REPORT INFORMATION
  Report Type: Spontaneous
  Country: JP (occurrence: JP)
  Receive Date: 20130523
  Receipt Date: 20131015
  Transmission Date: 20140711
  Serious: Yes (Death, Life-Threatening, Hospitalization, Other)
  Sender: FDA-Public Use
  Company Number: PHHY2013JP051204

PATIENT
  Age: 3 Year
  Sex: Female
  Weight: 13 kg

DRUGS (58)
  1. SANDIMMUNE NEORAL [Suspect]
     Dosage: 5 ML, DAILY
     Route: 041
     Dates: start: 20110119, end: 20110418
  2. SANDIMMUNE NEORAL [Suspect]
     Dosage: 0.2 ML, DAILY
     Route: 041
     Dates: start: 20110419, end: 20110425
  3. FLUDARABINE [Suspect]
     Indication: ACUTE MONOCYTIC LEUKAEMIA
     Dosage: 30 MG/M2, PER DAY, DAY 1 TO DAY 5
  4. CYTARABINE [Suspect]
     Indication: ACUTE MONOCYTIC LEUKAEMIA
     Dosage: 200 MG/M2, PER DAY; ON DAY 6 TO DAY 12
  5. CYTARABINE [Suspect]
     Dosage: 1 DF, INTRAMEDULLARY INJECTION, ON DAY 1
     Route: 028
  6. CYTARABINE [Suspect]
     Dosage: COURSE 1-3 MG/M2, PER DAY ON DAY 1 TO 3
  7. CYTARABINE [Suspect]
     Dosage: COURSE 1- 1 DF, INTRAMEDULLARY INJECTION, ON DAY 1
     Route: 028
  8. CYTARABINE [Suspect]
     Dosage: COURSE 2-200 MG/M2, PER DAY FROM DAY 4 TO 8
  9. CYTARABINE [Suspect]
     Dosage: COURSE 2- 1 DF, INTRAMEDULLARY INJECTION, ON DAY 1
     Route: 028
  10. CYTARABINE [Suspect]
     Dosage: COURSE 3- 2 MG/M2, PER DAY ON DAY 1 TO 3
  11. CYTARABINE [Suspect]
     Dosage: COURSE 3- 1 DF, INTRAMEDULLARY INJECTION, ON DAY 1
     Route: 028
  12. CYTARABINE [Suspect]
     Dosage: COURSE 5-200 MG/M2, PER DAY FROM DAY 4 TO 8
  13. CYTARABINE [Suspect]
     Dosage: 2 MG/M2, PER DAY ON DAY 1 TO 5
  14. MITOXANTRONE [Suspect]
     Indication: ACUTE MONOCYTIC LEUKAEMIA
     Dosage: 5 MG/M2, PER DAY, ON DAY 6 TO DAY 10
  15. MITOXANTRONE [Suspect]
     Dosage: 1 DF, INTRAMEDULLARY INJECTION, ON DAY 1
     Route: 028
  16. MITOXANTRONE [Suspect]
     Dosage: COURSE 2-5 MG/M2, PER DAY, ON DAY 4 TO DAY 6
  17. MITOXANTRONE [Suspect]
     Dosage: COURSE 5- 5 MG/M2, PER DAY, ON DAY 4 TO DAY 6
  18. IDARUBICIN [Suspect]
     Indication: ACUTE MONOCYTIC LEUKAEMIA
     Dosage: 10 MG/M2, PER DAY, INTRAMEDULLARY INJECTION, ON DAY 1
     Route: 028
  19. IDARUBICIN [Suspect]
     Dosage: 12 MG/M2, PER DAY
  20. DECADRON [Suspect]
     Indication: HISTIOCYTOSIS HAEMATOPHAGIC
     Dosage: 6 MG, DAILY
     Route: 041
     Dates: start: 20110126, end: 20110131
  21. PREDONINE [Suspect]
     Indication: HISTIOCYTOSIS HAEMATOPHAGIC
     Dosage: 25.5 MG, DAILY
     Route: 041
     Dates: start: 20110114, end: 20110125
  22. GRANULOCYTE COLONY-STIMULATING FACTOR NOS [Suspect]
     Indication: ACUTE MONOCYTIC LEUKAEMIA
     Dosage: 5 UG/KG, PER DAY
  23. ETOPOSIDE [Concomitant]
     Indication: ACUTE MONOCYTIC LEUKAEMIA
     Dosage: 150 MG/M2, PER DAY, ON DAY 1 TO DAY 5
  24. ETOPOSIDE [Concomitant]
     Indication: HISTIOCYTOSIS HAEMATOPHAGIC
     Dosage: 1 DF, INTRAMEDULLARY INJECTION, ON DAY 1
     Route: 028
  25. ETOPOSIDE [Concomitant]
     Dosage: COURSE 1-100 MG/M2, PER DAY, ON DAY 1 TO DAY 5
  26. ETOPOSIDE [Concomitant]
     Dosage: COURSE 1-1 DF, INTRAMEDULLARY INJECTION, ON DAY 1
     Route: 028
  27. ETOPOSIDE [Concomitant]
     Dosage: COURSE 2-150 MG/M2, PER DAY, ON DAY 1 TO DAY 3
  28. ETOPOSIDE [Concomitant]
     Dosage: COURSE 2-1 DF, INTRAMEDULLARY INJECTION, ON DAY 1
     Route: 028
  29. ETOPOSIDE [Concomitant]
     Dosage: COURSE 3-100 MG/M2, PER DAY, ON DAY 1 TO DAY 5
  30. ETOPOSIDE [Concomitant]
     Dosage: COURSE 3-1 DF, INTRAMEDULLARY INJECTION, ON DAY 1
     Route: 028
  31. ETOPOSIDE [Concomitant]
     Dosage: COURSE 5-150 MG/M2, PER DAY, ON DAY 1 TO DAY 3
  32. ANTIHYPERTENSIVE DRUGS [Concomitant]
     Indication: HYPERTENSION
  33. ANTIFUNGAL DRUGS [Concomitant]
     Indication: BRONCHOPULMONARY ASPERGILLOSIS
  34. VFEND [Concomitant]
     Indication: BRONCHOPULMONARY ASPERGILLOSIS
     Dosage: 100 MG, UNK
     Route: 041
     Dates: start: 20110112
  35. VFEND [Concomitant]
     Dosage: 400 MG, UNK
     Route: 041
  36. VFEND [Concomitant]
     Dosage: 300 MG, UNK
     Route: 041
     Dates: end: 20110207
  37. PANSPORIN [Concomitant]
     Indication: INFECTION PROPHYLAXIS
     Dosage: 750 MG, UNK
     Dates: start: 20101026
  38. KEITEN [Concomitant]
     Indication: INFECTION PROPHYLAXIS
     Dosage: 1.5 G, UNK
     Dates: start: 20101031
  39. AMIKACIN SULFATE [Concomitant]
     Indication: INFECTION PROPHYLAXIS
     Dosage: 50 MG, UNK
     Dates: start: 20101104
  40. MEROPENEM [Concomitant]
     Indication: INFECTION PROPHYLAXIS
     Dosage: 1 G, UNK
     Dates: start: 20101106
  41. MEROPENEM [Concomitant]
     Dosage: 1 G, UNK
  42. MEROPENEM [Concomitant]
     Dosage: 1 G, UNK
  43. MEROPENEM [Concomitant]
     Dosage: 1 G, UNK
  44. FIRSTCIN [Concomitant]
     Indication: INFECTION PROPHYLAXIS
     Dosage: 1.5 G
     Dates: start: 20101121
  45. FIRSTCIN [Concomitant]
     Dosage: 1.5 G
  46. FIRSTCIN [Concomitant]
     Dosage: 1.5 G
  47. TARGOCID [Concomitant]
     Indication: INFECTION PROPHYLAXIS
     Dosage: 260 MG, UNK
     Dates: start: 20110108
  48. TARGOCID [Concomitant]
     Dosage: 130 MG, UNK
  49. TARGOCID [Concomitant]
     Dosage: 130 MG, UNK
  50. TARGOCID [Concomitant]
     Dosage: 130 MG, UNK
  51. TARGOCID [Concomitant]
     Dosage: 130 MG, UNK
  52. TARGOCID [Concomitant]
     Dosage: 130 MG, UNK
  53. TARGOCID [Concomitant]
     Dosage: 130 MG, UNK
  54. MINOMYCIN [Concomitant]
     Indication: INFECTION PROPHYLAXIS
     Dosage: 40 MG, UNK
     Dates: start: 20110411, end: 20110426
  55. ZYVOX [Concomitant]
     Indication: INFECTION PROPHYLAXIS
     Dosage: 260 MG, UNK
     Dates: start: 20110415
  56. AMBISOME [Concomitant]
     Indication: BRONCHOPULMONARY ASPERGILLOSIS
     Dosage: 65 MG, UNK
     Dates: start: 20110106, end: 20110207
  57. SANDIMMUNE NEORAL [Suspect]
     Indication: HISTIOCYTOSIS HAEMATOPHAGIC
     Dosage: 0.3 ML, DAILY
     Route: 041
     Dates: start: 20110117
  58. SANDIMMUNE NEORAL [Suspect]
     Dosage: 0.6 ML, DAILY
     Route: 041
     Dates: start: 20110118

REACTIONS (9)
  - Histiocytosis haematophagic [Fatal]
  - Bronchopulmonary aspergillosis [Fatal]
  - Acute myeloid leukaemia [Fatal]
  - Bone marrow failure [Not Recovered/Not Resolved]
  - Pancytopenia [Not Recovered/Not Resolved]
  - VIIth nerve paralysis [Recovered/Resolved]
  - Acute myeloid leukaemia recurrent [Unknown]
  - Hypertension [Not Recovered/Not Resolved]
  - Drug ineffective [Unknown]
